FAERS Safety Report 9430141 (Version 1)
Quarter: 2013Q3

REPORT INFORMATION
  Report Type: Spontaneous
  Country: US (occurrence: US)
  Receive Date: 20130730
  Receipt Date: 20130730
  Transmission Date: 20140515
  Serious: No
  Sender: FDA-Public Use
  Company Number: US-PFIZER INC-2013221678

PATIENT
  Age: 74 Year
  Sex: Male

DRUGS (2)
  1. INLYTA [Suspect]
     Indication: RENAL CANCER
     Dosage: 1 MG, 2X/DAY
     Dates: start: 20120614
  2. INLYTA [Suspect]
     Dosage: 1 MG, 1X/DAY

REACTIONS (1)
  - Dizziness [Not Recovered/Not Resolved]
